FAERS Safety Report 5046041-5 (Version None)
Quarter: 2006Q3

REPORT INFORMATION
  Report Type: 
  Country: None (occurrence: None)
  Receive Date: 20060710
  Receipt Date: 20041210
  Transmission Date: 20061208
  Serious: Yes (Hospitalization)
  Sender: FDA-Public Use
  Company Number: PHHO2004FI17572

PATIENT
  Age: 71 Year
  Sex: Female
  Weight: 60 kg

DRUGS (2)
  1. ZOLEDRONIC ACID VS PLACEBO [Suspect]
     Indication: OSTEOPOROTIC FRACTURE
     Dosage: DOUBLE-BLIND
     Route: 042
     Dates: start: 20041209
  2. KALCIPOS-D [Concomitant]
     Indication: OSTEOPOROTIC FRACTURE

REACTIONS (5)
  - CONVULSION [None]
  - HEADACHE [None]
  - NAUSEA [None]
  - PYREXIA [None]
  - SYNCOPE [None]
